FAERS Safety Report 20838604 (Version 1)
Quarter: 2022Q2

REPORT INFORMATION
  Report Type: Spontaneous
  Country: US (occurrence: None)
  Receive Date: 20220516
  Receipt Date: 20220516
  Transmission Date: 20220721
  Serious: Yes (Life-Threatening)
  Sender: FDA-Public Use
  Company Number: None

PATIENT
  Age: 39 Year
  Sex: Female
  Weight: 45.9 kg

DRUGS (29)
  1. MONTELUKAST [Suspect]
     Active Substance: MONTELUKAST SODIUM
     Indication: Asthma
     Dosage: OTHER QUANTITY : 1 TABLET(S);?FREQUENCY : AT BEDTIME;?
     Route: 048
     Dates: start: 20200920, end: 20220511
  2. MONTELUKAST [Suspect]
     Active Substance: MONTELUKAST SODIUM
     Indication: Mast cell activation syndrome
  3. TOPIRAMATE [Concomitant]
     Active Substance: TOPIRAMATE
  4. PENTOXIFYLLINE [Concomitant]
  5. CORLANOR [Concomitant]
     Active Substance: IVABRADINE HYDROCHLORIDE
  6. RABEPRAZOLE DR [Concomitant]
  7. CROMOLYN [Concomitant]
     Active Substance: CROMOLYN
  8. MONTELUKAST [Concomitant]
  9. FOLIC ACID [Concomitant]
     Active Substance: FOLIC ACID
  10. ONDANSETRON ODT [Concomitant]
  11. BUPROPION HYDROCHLORIDE [Concomitant]
     Active Substance: BUPROPION HYDROCHLORIDE
  12. GABAPENTIN [Concomitant]
     Active Substance: GABAPENTIN
  13. NALTREXONE [Concomitant]
     Active Substance: NALTREXONE
  14. PROMETHAZINE [Concomitant]
     Active Substance: PROMETHAZINE HYDROCHLORIDE
  15. ALPRAZOLAM [Concomitant]
     Active Substance: ALPRAZOLAM
  16. VITAMIN D2 [Concomitant]
     Active Substance: ERGOCALCIFEROL
  17. PROVENTIL [Concomitant]
  18. FLONASE [Concomitant]
  19. AZELASTINE [Concomitant]
  20. OLOPATADINE HYDROCHLORIDE [Concomitant]
  21. POTASSIUM CITRATE [Concomitant]
     Active Substance: POTASSIUM CITRATE
  22. KETOTIFEN [Concomitant]
     Active Substance: KETOTIFEN
  23. GUANFACINE [Concomitant]
  24. CROMOLYN SODIUM [Concomitant]
     Active Substance: CROMOLYN SODIUM
  25. B COMPLEX [Concomitant]
  26. ALLEGRA [Concomitant]
     Active Substance: FEXOFENADINE HYDROCHLORIDE
  27. MULTIVITAMIN [Concomitant]
  28. VITAMIN B12 [Concomitant]
     Active Substance: CYANOCOBALAMIN
  29. ALGAE DHA [Concomitant]

REACTIONS (17)
  - Mental impairment [None]
  - Irritability [None]
  - Agitation [None]
  - Hostility [None]
  - Depression [None]
  - Suicidal ideation [None]
  - Disorientation [None]
  - Confusional state [None]
  - Anxiety [None]
  - Hallucination [None]
  - Obsessive-compulsive symptom [None]
  - Insomnia [None]
  - Memory impairment [None]
  - Tremor [None]
  - Tic [None]
  - Muscle spasms [None]
  - Dysphemia [None]

NARRATIVE: CASE EVENT DATE: 20200920
